FAERS Safety Report 25118225 (Version 1)
Quarter: 2025Q1

REPORT INFORMATION
  Report Type: Spontaneous
  Country: CN (occurrence: CN)
  Receive Date: 20250325
  Receipt Date: 20250325
  Transmission Date: 20250408
  Serious: Yes (Hospitalization)
  Sender: ACCORD
  Company Number: None

PATIENT
  Age: 57 Year
  Sex: Female
  Weight: 62.8 kg

DRUGS (3)
  1. TRASTUZUMAB [Suspect]
     Active Substance: TRASTUZUMAB
     Indication: Breast cancer recurrent
     Dosage: 504 MILLIGRAM, QD, IV DRIP?STRENGTH: 150 MILLIGRAM
     Dates: start: 20250228, end: 20250228
  2. PYROTINIB [Suspect]
     Active Substance: PYROTINIB
     Indication: Breast cancer recurrent
     Dosage: 400 MILLIGRAM, QD
     Route: 048
     Dates: start: 20250228, end: 20250306
  3. DOCETAXEL [Suspect]
     Active Substance: DOCETAXEL
     Indication: Breast cancer recurrent
     Dosage: 120 MILLIGRAM, QD; IV DRIP
     Dates: start: 20250228, end: 20250228

REACTIONS (1)
  - Myelosuppression [Recovering/Resolving]

NARRATIVE: CASE EVENT DATE: 20250307
